FAERS Safety Report 20334905 (Version 1)
Quarter: 2022Q1

REPORT INFORMATION
  Report Type: Spontaneous
  Country: ES (occurrence: ES)
  Receive Date: 20220114
  Receipt Date: 20220114
  Transmission Date: 20220423
  Serious: Yes (Other)
  Sender: FDA-Public Use
  Company Number: None

PATIENT
  Age: 43 Year
  Sex: Female

DRUGS (2)
  1. RIFAMPIN [Suspect]
     Active Substance: RIFAMPIN
     Indication: Prophylactic chemotherapy
     Dosage: 600 MG, QD
     Dates: start: 20200319, end: 20200408
  2. ISONIAZID [Suspect]
     Active Substance: ISONIAZID
     Indication: Prophylactic chemotherapy
     Dosage: 300 MG, QD
     Dates: start: 20200319, end: 20200408

REACTIONS (2)
  - Hypertransaminasaemia [Recovered/Resolved]
  - Drug-induced liver injury [Recovered/Resolved]
